FAERS Safety Report 5272104-5 (Version None)
Quarter: 2007Q1

REPORT INFORMATION
  Report Type: 
  Country: None (occurrence: None)
  Receive Date: 20070320
  Receipt Date: 20070320
  Transmission Date: 20070707
  Serious: Yes (Hospitalization)
  Sender: FDA-Public Use
  Company Number: None

PATIENT
  Age: 61 Year
  Sex: Male
  Weight: 63.6 kg

DRUGS (2)
  1. WARFARIN SODIUM [Suspect]
     Indication: ANTICOAGULANT THERAPY
     Dosage: 5 MG DAILY PO
     Route: 048
     Dates: start: 20070121, end: 20070224
  2. FONDAPARINUX 7.5 MG [Suspect]
     Indication: ANTICOAGULANT THERAPY
     Dosage: 7.5 MG DAILY SQ
     Route: 058
     Dates: start: 20070221, end: 20070224

REACTIONS (6)
  - COUGH [None]
  - FATIGUE [None]
  - HAEMOPTYSIS [None]
  - INTERNATIONAL NORMALISED RATIO DECREASED [None]
  - INTERNATIONAL NORMALISED RATIO INCREASED [None]
  - PHARYNGOLARYNGEAL PAIN [None]
